FAERS Safety Report 9087595 (Version 1)
Quarter: 2013Q1

REPORT INFORMATION
  Report Type: Report from Study
  Country: IT (occurrence: IT)
  Receive Date: 20130201
  Receipt Date: 20130201
  Transmission Date: 20140127
  Serious: Yes (Hospitalization)
  Sender: FDA-Public Use
  Company Number: IT-ROCHE-1181730

PATIENT
  Age: 54 None
  Sex: Female
  Weight: 82 kg

DRUGS (4)
  1. TRASTUZUMAB [Suspect]
     Indication: BREAST CANCER
     Route: 042
     Dates: start: 20121217, end: 20130123
  2. DOCETAXEL [Suspect]
     Indication: BREAST CANCER
     Dosage: DATE OF LAST DOSE PRIOR TO SAE 07/JAN/2013
     Route: 042
     Dates: start: 20121217, end: 20130123
  3. SELOKEN [Concomitant]
     Route: 065
  4. PERTUZUMAB [Suspect]
     Indication: BREAST CANCER
     Dosage: DATE OF LAST DOSE PRIOR TO SAE 07/JAN/2013
     Route: 042
     Dates: start: 20121217, end: 20130123

REACTIONS (1)
  - Pericardial effusion [Recovered/Resolved with Sequelae]
